FAERS Safety Report 4852198-9 (Version None)
Quarter: 2005Q4

REPORT INFORMATION
  Report Type: 
  Country: None (occurrence: None)
  Receive Date: 20051213
  Receipt Date: 20050713
  Transmission Date: 20060501
  Serious: Yes (Hospitalization)
  Sender: FDA-Public Use
  Company Number: FI-GLAXOSMITHKLINE-B0388082A

PATIENT
  Age: 23 Year
  Sex: Male

DRUGS (6)
  1. ZINACEF [Suspect]
     Indication: DRUG USE FOR UNKNOWN INDICATION
     Dosage: 1.5G PER DAY
     Route: 042
     Dates: start: 20050224, end: 20050303
  2. MOXIFLOXACIN HYDROCHLORIDE [Suspect]
     Indication: PNEUMONIA
     Dosage: 400MG UNKNOWN
     Route: 048
     Dates: start: 20050226, end: 20050301
  3. PARACETAMOL [Concomitant]
  4. CITALOPRAM HYDROBROMIDE [Concomitant]
  5. PREDNISOLONE [Concomitant]
  6. DOXYCYCLINE HYDROCHLORIDE [Concomitant]

REACTIONS (6)
  - BLOOD BILIRUBIN INCREASED [None]
  - BLOOD LACTATE DEHYDROGENASE ABNORMAL [None]
  - GAMMA-GLUTAMYLTRANSFERASE ABNORMAL [None]
  - HEPATIC ENZYME INCREASED [None]
  - LIVER DISORDER [None]
  - TRANSAMINASES INCREASED [None]
